FAERS Safety Report 13579403 (Version 3)
Quarter: 2017Q2

REPORT INFORMATION
  Report Type: Report from Study
  Country: DE (occurrence: DE)
  Receive Date: 20170525
  Receipt Date: 20170526
  Transmission Date: 20170830
  Serious: Yes (Hospitalization)
  Sender: FDA-Public Use
  Company Number: DE-ROCHE-1934730

PATIENT
  Age: 63 Year
  Sex: Male
  Weight: 95 kg

DRUGS (12)
  1. VENETOCLAX [Suspect]
     Active Substance: VENETOCLAX
     Route: 048
     Dates: start: 20170309
  2. VENETOCLAX [Suspect]
     Active Substance: VENETOCLAX
     Dosage: TARGET DOSE (400 MG)
     Route: 048
     Dates: start: 20170316
  3. VENETOCLAX [Suspect]
     Active Substance: VENETOCLAX
     Dosage: REDUCED DOSE
     Route: 048
     Dates: start: 20170428, end: 20170429
  4. CLOPIDOGREL [Concomitant]
     Active Substance: CLOPIDOGREL BISULFATE
     Route: 048
     Dates: start: 201705
  5. FERROSANOL [Concomitant]
     Active Substance: FERROUS GLUCONATE
     Route: 048
     Dates: start: 20170422
  6. VENETOCLAX [Suspect]
     Active Substance: VENETOCLAX
     Indication: CHRONIC LYMPHOCYTIC LEUKAEMIA
     Dosage: DATE OF LAST DOSE PRIOR TO SAE: 9/MAY/2017
     Route: 048
     Dates: start: 20170216
  7. VENETOCLAX [Suspect]
     Active Substance: VENETOCLAX
     Route: 048
     Dates: start: 20170302
  8. OBINUTUZUMAB [Suspect]
     Active Substance: OBINUTUZUMAB
     Indication: CHRONIC LYMPHOCYTIC LEUKAEMIA
     Dosage: DATE OF LAST DOSE PRIOR TO SAE: 19/APR/2017?LAST DOSE: 1000MG
     Route: 042
     Dates: start: 20170126, end: 20170429
  9. IBRUTINIB [Suspect]
     Active Substance: IBRUTINIB
     Dosage: DATE OF LAST DOSE PRIOR TO SAE: 29/APR/2017?LAST DOSE: 280MG DAILY (REDUCED DOSE)
     Route: 048
     Dates: start: 20170419, end: 20170429
  10. VENETOCLAX [Suspect]
     Active Substance: VENETOCLAX
     Route: 048
     Dates: start: 20170223
  11. IBRUTINIB [Suspect]
     Active Substance: IBRUTINIB
     Indication: CHRONIC LYMPHOCYTIC LEUKAEMIA
     Route: 048
     Dates: start: 20170126
  12. OMEPRAZOL [Concomitant]
     Active Substance: OMEPRAZOLE
     Route: 048
     Dates: start: 20170422

REACTIONS (2)
  - Angina pectoris [Recovered/Resolved]
  - Coronary artery disease [Recovered/Resolved]

NARRATIVE: CASE EVENT DATE: 20170510
